FAERS Safety Report 9708802 (Version 1)
Quarter: 2013Q4

REPORT INFORMATION
  Report Type: Spontaneous
  Country: JP (occurrence: JP)
  Receive Date: 20131125
  Receipt Date: 20131125
  Transmission Date: 20140711
  Serious: Yes (Hospitalization)
  Sender: FDA-Public Use
  Company Number: JP-TEVA-446105ISR

PATIENT
  Age: 79 Year
  Sex: Male

DRUGS (3)
  1. CEFTRIAXONE [Suspect]
     Indication: PERICARDITIS INFECTIVE
     Dosage: 2 GRAM DAILY; 2 G/DAY DIVIDED INTO TWO EQUAL DOSES
     Route: 042
  2. CEFTRIAXONE [Suspect]
     Dosage: 4 G/DAY
     Route: 042
  3. AMIKACIN [Suspect]
     Indication: PERICARDITIS INFECTIVE
     Dosage: DOSAGE NOT STATED

REACTIONS (2)
  - Calculus urinary [Recovering/Resolving]
  - Cholelithiasis [Unknown]
